FAERS Safety Report 13950817 (Version 2)
Quarter: 2017Q4

REPORT INFORMATION
  Report Type: Spontaneous
  Country: US (occurrence: US)
  Receive Date: 20170908
  Receipt Date: 20171110
  Transmission Date: 20180320
  Serious: Yes (Death, Other)
  Sender: FDA-Public Use
  Company Number: US-OTSUKA-2017_019521

PATIENT
  Age: 19 Year
  Sex: Female

DRUGS (2)
  1. INVEGA SUSTENNA [Suspect]
     Active Substance: PALIPERIDONE PALMITATE
     Indication: PRODUCT USED FOR UNKNOWN INDICATION
     Dosage: 117 MG, QM (MONTHLY)
     Route: 065
  2. ABILIFY MAINTENA [Suspect]
     Active Substance: ARIPIPRAZOLE
     Indication: BIPOLAR I DISORDER
     Dosage: 400 MG EVERY 28 DAYS
     Route: 030
     Dates: start: 201707

REACTIONS (2)
  - Death [Fatal]
  - Blood prolactin increased [Unknown]

NARRATIVE: CASE EVENT DATE: 201707
